FAERS Safety Report 7456032-2 (Version None)
Quarter: 2011Q1

REPORT INFORMATION
  Report Type: 
  Country: None (occurrence: None)
  Receive Date: 20110302
  Receipt Date: 20110104
  Transmission Date: 20110831
  Serious: No
  Sender: FDA-Public Use
  Company Number: 024876

PATIENT
  Sex: Female
  Weight: 59 kg

DRUGS (6)
  1. BONIVA [Concomitant]
  2. ESTRADIOL [Concomitant]
  3. VICODIN [Concomitant]
  4. CIMZIA [Suspect]
     Indication: CROHN'S DISEASE
     Dosage: 200 MG 2X/WEEK SUBCUTANEOUS
     Route: 058
  5. VOLTAREN [Concomitant]
  6. LOMOTIL [Concomitant]

REACTIONS (2)
  - PAIN IN EXTREMITY [None]
  - IMPAIRED HEALING [None]
